FAERS Safety Report 11352152 (Version 2)
Quarter: 2015Q4

REPORT INFORMATION
  Report Type: Spontaneous
  Country: US (occurrence: US)
  Receive Date: 20150807
  Receipt Date: 20151120
  Transmission Date: 20160304
  Serious: No
  Sender: FDA-Public Use
  Company Number: US-JNJFOC-20150619447

PATIENT
  Age: 66 Year
  Sex: Female
  Weight: 71.67 kg

DRUGS (6)
  1. BLOOD PRESSURE MEDICATION NOS [Concomitant]
     Active Substance: UNSPECIFIED INGREDIENT
     Indication: PRODUCT USED FOR UNKNOWN INDICATION
     Route: 065
  2. DIURETIC [Concomitant]
     Active Substance: UNSPECIFIED INGREDIENT
     Indication: HYPERTENSION
     Dosage: 7-8 MONTHS
     Route: 065
     Dates: start: 2015
  3. ARMOUR THYROID [Concomitant]
     Active Substance: THYROID, PORCINE\THYROID, UNSPECIFIED
     Indication: BASEDOW^S DISEASE
     Route: 065
  4. MENS ROGAINE EXTRA STRENGTH [Suspect]
     Active Substance: MINOXIDIL
     Indication: ALOPECIA
     Dosage: ONLY USED IT THE DAY OR EVENING I WASHED MY HAIR SO NOT MORNING ANDNIGHT AS SUGGESTED
     Route: 065
     Dates: end: 2015
  5. BENICAR [Concomitant]
     Active Substance: OLMESARTAN MEDOXOMIL
     Indication: HYPERTENSION
     Dosage: 7-8 MONTHS
     Route: 065
     Dates: start: 2015
  6. MENS ROGAINE EXTRA STRENGTH [Suspect]
     Active Substance: MINOXIDIL
     Route: 065

REACTIONS (2)
  - Wrong patient received medication [Unknown]
  - Alopecia [Unknown]

NARRATIVE: CASE EVENT DATE: 201504
